FAERS Safety Report 18611211 (Version 1)
Quarter: 2020Q4

REPORT INFORMATION
  Report Type: Spontaneous
  Country: FI (occurrence: FI)
  Receive Date: 20201214
  Receipt Date: 20201214
  Transmission Date: 20210114
  Serious: Yes (Other)
  Sender: FDA-Public Use
  Company Number: FI-TEVA-2020-FI-1856892

PATIENT
  Age: 35 Year
  Sex: Male

DRUGS (1)
  1. TOPIRAMATE. [Suspect]
     Active Substance: TOPIRAMATE
     Indication: BIPOLAR DISORDER
     Route: 065
     Dates: start: 2014

REACTIONS (5)
  - Psychotic symptom [Unknown]
  - Disturbance in attention [Unknown]
  - Weight decreased [Unknown]
  - Off label use [Unknown]
  - Therapeutic response unexpected [Unknown]
